FAERS Safety Report 10297169 (Version 2)
Quarter: 2014Q3

REPORT INFORMATION
  Report Type: Report from Study
  Country: US (occurrence: US)
  Receive Date: 20140711
  Receipt Date: 20140818
  Transmission Date: 20150326
  Serious: Yes (Hospitalization)
  Sender: FDA-Public Use
  Company Number: US-ACTELION-A-NJ2014-101943

PATIENT
  Age: 54 Year
  Sex: Female

DRUGS (2)
  1. VENTAVIS [Suspect]
     Active Substance: ILOPROST
     Indication: COR PULMONALE CHRONIC
     Dosage: 5 MCG, 6X DAILY
     Route: 055
     Dates: start: 20080128
  2. REVATIO [Concomitant]
     Active Substance: SILDENAFIL CITRATE

REACTIONS (4)
  - Kidney infection [Unknown]
  - Cystitis [Unknown]
  - Urinary tract infection [Unknown]
  - Anaemia [Unknown]

NARRATIVE: CASE EVENT DATE: 201407
